FAERS Safety Report 8289935-X (Version None)
Quarter: 2012Q2

REPORT INFORMATION
  Report Type: 
  Country: None (occurrence: None)
  Receive Date: 20120417
  Receipt Date: 20120402
  Transmission Date: 20120825
  Serious: Yes (Hospitalization)
  Sender: FDA-Public Use
  Company Number: FR-ROCHE-1056081

PATIENT
  Sex: Male

DRUGS (11)
  1. TRIMEPRAZINE TARTRATE [Concomitant]
     Indication: INSOMNIA
     Dates: start: 20091020
  2. ZYPREXA [Suspect]
     Dates: start: 20120213
  3. SUBUTEX [Suspect]
     Indication: PRODUCT USED FOR UNKNOWN INDICATION
  4. RISPERDAL [Concomitant]
     Indication: SCHIZOPHRENIA
     Route: 048
     Dates: start: 20091020
  5. ZOLPIDEM [Concomitant]
     Indication: INSOMNIA
     Route: 048
     Dates: start: 20091020
  6. LEVOMEPROMAZINE HYDROCHLORIDE/LEVOMEPROMAZINE MALEATE [Concomitant]
     Indication: AGITATION
     Dosage: DRUG NAME REPORTED AS NOZINAN
     Route: 048
     Dates: start: 20091020
  7. ZYPREXA [Suspect]
     Indication: SCHIZOPHRENIA
     Route: 048
     Dates: start: 20091020, end: 20120203
  8. CLONAZEPAM [Suspect]
     Indication: ANXIETY
     Route: 048
     Dates: start: 20091020, end: 20120203
  9. LEPTICUR [Concomitant]
     Route: 048
     Dates: start: 20091020
  10. SEROQUEL [Suspect]
     Indication: SCHIZOPHRENIA, PARANOID TYPE
     Dosage: DRUG REPORTED AS XEROQUEL
     Route: 048
     Dates: start: 20120203, end: 20120213
  11. OXAZEPAM [Concomitant]
     Dates: start: 20120213

REACTIONS (7)
  - HALLUCINATION [None]
  - DISINHIBITION [None]
  - ABNORMAL BEHAVIOUR [None]
  - AGITATION [None]
  - WITHDRAWAL SYNDROME [None]
  - INSOMNIA [None]
  - ANXIETY [None]
